FAERS Safety Report 4901541-0 (Version None)
Quarter: 2006Q1

REPORT INFORMATION
  Report Type: 
  Country: None (occurrence: None)
  Receive Date: 20060201
  Receipt Date: 20060201
  Transmission Date: 20060701
  Serious: Yes (Hospitalization)
  Sender: FDA-Public Use
  Company Number: None

PATIENT
  Sex: Male
  Weight: 107.0489 kg

DRUGS (11)
  1. BACLOFEN [Suspect]
     Indication: MUSCLE TWITCHING
     Dosage: ONE TABLET PO TID
     Route: 048
     Dates: start: 20051110, end: 20051118
  2. CARBAMAZEPINE [Concomitant]
  3. FELODIPINE [Concomitant]
  4. ALBUTEROL [Concomitant]
  5. FORMOTEROL FUMARATE [Concomitant]
  6. AEROLIZER [Concomitant]
  7. HYDROCHLOROTHIAZIDE [Concomitant]
  8. IPRATROPIUM BROMIDE [Concomitant]
  9. LISINOPRIL [Concomitant]
  10. OMEPRAZOLE [Concomitant]
  11. SIMVASTATIN [Concomitant]

REACTIONS (4)
  - ASTHMA [None]
  - CONDITION AGGRAVATED [None]
  - MALLORY-WEISS SYNDROME [None]
  - MENTAL STATUS CHANGES [None]
